FAERS Safety Report 4392761-5 (Version None)
Quarter: 2004Q3

REPORT INFORMATION
  Report Type: 
  Country: None (occurrence: None)
  Receive Date: 20040702
  Receipt Date: 20040625
  Transmission Date: 20050211
  Serious: Yes (Death)
  Sender: FDA-Public Use
  Company Number: 2004AP03302

PATIENT
  Age: 80 Year
  Sex: Male

DRUGS (3)
  1. OMEPRAL [Suspect]
     Dosage: 40 MG DAILY IV
     Route: 042
  2. FIRSTCIN [Suspect]
  3. RADIATION THERAPY [Concomitant]

REACTIONS (2)
  - AGRANULOCYTOSIS [None]
  - PNEUMONIA [None]
